FAERS Safety Report 18212834 (Version 1)
Quarter: 2020Q3

REPORT INFORMATION
  Report Type: Spontaneous
  Country: US (occurrence: US)
  Receive Date: 20200831
  Receipt Date: 20200831
  Transmission Date: 20201103
  Serious: Yes (Death)
  Sender: FDA-Public Use
  Company Number: US-PFIZER INC-2020326371

PATIENT
  Age: 76 Year
  Sex: Male

DRUGS (2)
  1. INLYTA [Suspect]
     Active Substance: AXITINIB
     Dosage: 5 MG (DOSAGE: 5MG)
  2. INLYTA [Suspect]
     Active Substance: AXITINIB
     Dosage: 10 MG [DOSAGE: 10 MG]

REACTIONS (1)
  - Death [Fatal]
